FAERS Safety Report 7097059-2 (Version None)
Quarter: 2010Q4

REPORT INFORMATION
  Report Type: 
  Country: None (occurrence: None)
  Receive Date: 20101027
  Receipt Date: 20101015
  Transmission Date: 20110411
  Serious: Yes (Hospitalization)
  Sender: FDA-Public Use
  Company Number: DKLU1065639

PATIENT
  Age: 47 Year
  Sex: Female

DRUGS (7)
  1. PANHEMATIN [Suspect]
     Indication: PORPHYRIA ACUTE
     Dosage: SEE IMAGE
     Route: 042
     Dates: start: 20100701, end: 20100801
  2. PANHEMATIN [Suspect]
     Indication: PORPHYRIA ACUTE
     Dosage: SEE IMAGE
     Route: 042
     Dates: start: 20100401
  3. PANHEMATIN [Suspect]
     Indication: PORPHYRIA ACUTE
     Dosage: SEE IMAGE
     Route: 042
     Dates: start: 20100601
  4. PANHEMATIN [Suspect]
     Indication: PORPHYRIA ACUTE
     Dosage: SEE IMAGE
     Route: 042
     Dates: start: 20100923
  5. FENTANYL-100 [Suspect]
     Indication: ANAESTHESIA
     Dosage: INTRAVENOUS (NOT OTHERWISE SPECIFIED)
     Route: 042
     Dates: start: 20100923, end: 20100923
  6. PROPOFOL [Suspect]
     Indication: ANAESTHESIA
     Dosage: INTRAVENOUS (NOT OTHERWISE SPECIFIED)
     Route: 042
     Dates: start: 20100923, end: 20100923
  7. VERSED [Suspect]
     Indication: ANAESTHESIA
     Dosage: INTRAVENOUS (NOT OTHERWISE SPECIFIED)
     Route: 042
     Dates: start: 20100923, end: 20100923

REACTIONS (2)
  - DRUG ERUPTION [None]
  - DRUG INTERACTION [None]
